FAERS Safety Report 25187413 (Version 1)
Quarter: 2025Q2

REPORT INFORMATION
  Report Type: Spontaneous
  Country: MA (occurrence: MA)
  Receive Date: 20250411
  Receipt Date: 20250411
  Transmission Date: 20250716
  Serious: Yes (Hospitalization, Other)
  Sender: UNICHEM
  Company Number: MA-UNICHEM LABORATORIES LIMITED-UNI-2025-MA-001822

PATIENT

DRUGS (1)
  1. AMIODARONE [Suspect]
     Active Substance: AMIODARONE
     Indication: Endocarditis staphylococcal
     Route: 065
     Dates: start: 2021

REACTIONS (2)
  - Neuromyopathy [Recovering/Resolving]
  - Toxicity to various agents [Unknown]
